FAERS Safety Report 5530209-5 (Version None)
Quarter: 2007Q4

REPORT INFORMATION
  Report Type: 
  Country: None (occurrence: None)
  Receive Date: 20071130
  Receipt Date: 20071122
  Transmission Date: 20080405
  Serious: Yes (Life-Threatening, Hospitalization, Other)
  Sender: FDA-Public Use
  Company Number: SE-NOVOPROD-268646

PATIENT
  Age: 73 Year
  Sex: Female
  Weight: 74 kg

DRUGS (3)
  1. NORDITROPIN NORDIFLEX [Suspect]
     Indication: GROWTH HORMONE DEFICIENCY
     Dates: start: 20070927, end: 20071013
  2. HYDROCORTISON                      /00028601/ [Concomitant]
  3. LEVOTHYROXINE SODIUM [Concomitant]
     Dosage: .1 MG, QD

REACTIONS (2)
  - ANGIOEDEMA [None]
  - SWOLLEN TONGUE [None]
